FAERS Safety Report 9430679 (Version 1)
Quarter: 2013Q3

REPORT INFORMATION
  Report Type: Report from Study
  Country: US (occurrence: US)
  Receive Date: 20130730
  Receipt Date: 20130730
  Transmission Date: 20140515
  Serious: No
  Sender: FDA-Public Use
  Company Number: US-ABBOTT-13P-163-1094600-00

PATIENT
  Age: 59 Year
  Sex: Male

DRUGS (7)
  1. NIASPAN (COATED) [Suspect]
     Indication: PRODUCT USED FOR UNKNOWN INDICATION
     Route: 048
     Dates: start: 200512
  2. NIASPAN (COATED) [Suspect]
     Dosage: 1500MG DAILY
     Route: 048
  3. NIASPAN (COATED) [Suspect]
     Route: 048
  4. METFORMIN [Concomitant]
     Indication: PRODUCT USED FOR UNKNOWN INDICATION
     Dosage: .5 TABLET DAILY
     Route: 048
  5. METFORMIN [Concomitant]
     Route: 048
  6. WELCHOL [Concomitant]
     Indication: PRODUCT USED FOR UNKNOWN INDICATION
     Dosage: 2 HOURS AFTER TAKING NIASPAN
     Route: 048
  7. ASPIRIN [Concomitant]
     Indication: PRODUCT USED FOR UNKNOWN INDICATION
     Route: 048

REACTIONS (4)
  - Blood glucose increased [Recovered/Resolved]
  - Middle insomnia [Recovered/Resolved]
  - Flushing [Recovered/Resolved]
  - Glucose tolerance impaired [Unknown]
